FAERS Safety Report 6347649-7 (Version None)
Quarter: 2009Q3

REPORT INFORMATION
  Report Type: 
  Country: None (occurrence: None)
  Receive Date: 20090910
  Receipt Date: 20090904
  Transmission Date: 20100115
  Serious: Yes (Death, Hospitalization, Other)
  Sender: FDA-Public Use
  Company Number: US-MERCK-0908USA04849

PATIENT
  Age: 57 Year
  Sex: Male

DRUGS (2)
  1. HYZAAR [Suspect]
     Indication: HYPERTENSION
     Route: 048
     Dates: start: 20090714
  2. ACTOS [Suspect]
     Route: 065

REACTIONS (4)
  - ACUTE MYOCARDIAL INFARCTION [None]
  - LIVER INJURY [None]
  - RENAL FAILURE [None]
  - SUDDEN DEATH [None]
